FAERS Safety Report 7615810-7 (Version None)
Quarter: 2011Q3

REPORT INFORMATION
  Report Type: 
  Country: None (occurrence: None)
  Receive Date: 20110711
  Receipt Date: 20110627
  Transmission Date: 20111222
  Serious: Yes (Hospitalization, Other)
  Sender: FDA-Public Use
  Company Number: GER/UKI/11/0018853

PATIENT
  Age: 29 Year
  Sex: Female

DRUGS (10)
  1. ACYCLOVIR [Suspect]
     Indication: NECROTISING RETINITIS
     Dosage: 10 MG/KG, 3 IN 1 D, INTRAVENOUS
     Route: 042
  2. AMOXICILLIN [Suspect]
     Indication: LOWER RESPIRATORY TRACT INFECTION
  3. COMBIVIR [Suspect]
     Indication: PRODUCT USED FOR UNKNOWN INDICATION
  4. PREDNISOLONE [Concomitant]
  5. ACYCLOVIR [Suspect]
     Dosage: 400 MG, 4 IN 1 D, ORAL ; 800 MG
     Route: 048
  6. DEXAMETHASONE [Concomitant]
  7. FAMCICLOVIR [Suspect]
     Indication: PRODUCT USED FOR UNKNOWN INDICATION
  8. NEVIRAPINE [Suspect]
     Indication: PRODUCT USED FOR UNKNOWN INDICATION
  9. TRIMETHOPRIM + SULFAMETHOXAZOLE [Suspect]
     Indication: PRODUCT USED FOR UNKNOWN INDICATION
  10. FLUCONAZOLE [Suspect]
     Indication: PRODUCT USED FOR UNKNOWN INDICATION

REACTIONS (16)
  - SKIN DISORDER [None]
  - VARICELLA VIRUS TEST POSITIVE [None]
  - LOWER RESPIRATORY TRACT INFECTION [None]
  - CYTOMEGALOVIRUS TEST POSITIVE [None]
  - CATARACT [None]
  - CHEST DISCOMFORT [None]
  - DRUG HYPERSENSITIVITY [None]
  - RASH MACULO-PAPULAR [None]
  - HAEMOGLOBIN DECREASED [None]
  - NECROTISING RETINITIS [None]
  - HERPES SIMPLEX SEROLOGY POSITIVE [None]
  - VISUAL ACUITY REDUCED [None]
  - ANGIOEDEMA [None]
  - VISION BLURRED [None]
  - CD4 LYMPHOCYTES DECREASED [None]
  - RASH ERYTHEMATOUS [None]
